FAERS Safety Report 16618555 (Version 1)
Quarter: 2019Q3

REPORT INFORMATION
  Report Type: Spontaneous
  Country: GB (occurrence: GB)
  Receive Date: 20190723
  Receipt Date: 20190723
  Transmission Date: 20191004
  Serious: Yes (Death)
  Sender: FDA-Public Use
  Company Number: GB-TAKEDA-2019TUS044368

PATIENT
  Age: 42 Year
  Sex: Male

DRUGS (1)
  1. BRIGATINIB [Suspect]
     Active Substance: BRIGATINIB
     Indication: INFLAMMATORY MYOFIBROBLASTIC TUMOUR
     Dosage: UNK
     Route: 048
     Dates: end: 20190604

REACTIONS (2)
  - Drug ineffective [Fatal]
  - Disease progression [Fatal]
